FAERS Safety Report 10693058 (Version 5)
Quarter: 2015Q2

REPORT INFORMATION
  Report Type: Report from Study
  Country: US (occurrence: US)
  Receive Date: 20150106
  Receipt Date: 20150403
  Transmission Date: 20150821
  Serious: Yes (Life-Threatening, Hospitalization, Other)
  Sender: FDA-Public Use
  Company Number: US-ASTRAZENECA-2015SE00836

PATIENT
  Age: 18570 Day
  Sex: Female

DRUGS (12)
  1. ERIBULIN [Suspect]
     Active Substance: ERIBULIN
     Indication: BREAST CANCER METASTATIC
     Dosage: 1.4 MG/M2 IV DAY 1 AND DAY 8, REPEAT EVERY 21 DAYS (2.1 MG)
     Route: 042
     Dates: start: 20150213, end: 20150213
  2. ERIBULIN [Suspect]
     Active Substance: ERIBULIN
     Indication: BREAST CANCER METASTATIC
     Dosage: 1.4 MG/M2 IV DAY 1 AND DAY 8, REPEAT EVERY 21 DAYS (2.1 MG)
     Route: 042
     Dates: start: 20150306, end: 20150306
  3. AMBIEN [Concomitant]
     Active Substance: ZOLPIDEM TARTRATE
     Indication: INSOMNIA
     Route: 048
  4. ERIBULIN [Suspect]
     Active Substance: ERIBULIN
     Indication: BREAST CANCER METASTATIC
     Dosage: 1.4 MG/M2 IV DAY 1 AND DAY 8, REPEAT EVERY 21 DAYS (2.1 MG)
     Route: 042
     Dates: start: 20140116, end: 20150116
  5. ERIBULIN [Suspect]
     Active Substance: ERIBULIN
     Indication: BREAST CANCER METASTATIC
     Dosage: 1.4 MG/M2 IV DAY 1 AND DAY 8, REPEAT EVERY 21 DAYS (2.1 MG)
     Route: 042
     Dates: start: 20150102, end: 20150102
  6. ERIBULIN [Suspect]
     Active Substance: ERIBULIN
     Indication: BREAST CANCER METASTATIC
     Dosage: 1.4 MG/M2 IV DAY 1 AND DAY 8, REPEAT EVERY 21 DAYS (2.1 MG)
     Route: 042
     Dates: start: 20150206, end: 20150206
  7. ALEVE [Concomitant]
     Active Substance: NAPROXEN SODIUM
     Indication: BACK PAIN
     Route: 048
  8. ERIBULIN [Suspect]
     Active Substance: ERIBULIN
     Indication: BREAST CANCER METASTATIC
     Dosage: 1.4 MG/M2 IV DAY 1 AND DAY 8, REPEAT EVERY 21 DAYS (2.1 MG)
     Route: 042
     Dates: start: 20150227, end: 20150227
  9. METFORMIN [Concomitant]
     Active Substance: METFORMIN HYDROCHLORIDE
     Indication: HYPERGLYCAEMIA
     Route: 048
  10. ERIBULIN [Suspect]
     Active Substance: ERIBULIN
     Indication: BREAST CANCER METASTATIC
     Dosage: 1.4 MG/M2 IV DAY 1 AND DAY 8, REPEAT EVERY 21 DAYS (2.6 MG)
     Route: 042
     Dates: start: 20141218, end: 20141218
  11. ERIBULIN [Suspect]
     Active Substance: ERIBULIN
     Indication: BREAST CANCER METASTATIC
     Dosage: 1.4 MG/M2 IV DAY 1 AND DAY 8, REPEAT EVERY 21 DAYS (2.1 MG)
     Route: 042
     Dates: start: 20150123, end: 20150123
  12. PROZAC [Concomitant]
     Active Substance: FLUOXETINE HYDROCHLORIDE
     Indication: DEPRESSION
     Route: 048

REACTIONS (1)
  - Sepsis [Recovered/Resolved]

NARRATIVE: CASE EVENT DATE: 20141226
